FAERS Safety Report 8266488-3 (Version None)
Quarter: 2012Q2

REPORT INFORMATION
  Report Type: 
  Country: None (occurrence: None)
  Receive Date: 20120406
  Receipt Date: 20120402
  Transmission Date: 20120825
  Serious: Yes (Death)
  Sender: FDA-Public Use
  Company Number: FR-ASTRAZENECA-2012SE21799

PATIENT
  Age: 13 Year
  Sex: Female

DRUGS (8)
  1. SINGULAIR [Concomitant]
  2. BRICANYL [Suspect]
     Indication: DYSPNOEA
     Route: 058
     Dates: start: 20120210, end: 20120210
  3. PREDNISOLONE [Suspect]
     Indication: DYSPNOEA
     Route: 048
     Dates: start: 20120210, end: 20120210
  4. VENTOLIN [Suspect]
     Indication: DYSPNOEA
     Route: 055
     Dates: start: 20120210, end: 20120210
  5. XOLAIR [Suspect]
     Indication: ASTHMA
     Route: 042
     Dates: start: 20120101, end: 20120201
  6. XOLAIR [Suspect]
     Route: 042
  7. DESLORATADINE [Concomitant]
  8. PULMICORT [Concomitant]
     Dosage: TWICE PER DAY

REACTIONS (1)
  - CARDIO-RESPIRATORY ARREST [None]
